FAERS Safety Report 15082198 (Version 1)
Quarter: 2018Q2

REPORT INFORMATION
  Report Type: Spontaneous
  Country: US (occurrence: US)
  Receive Date: 20180628
  Receipt Date: 20180628
  Transmission Date: 20180711
  Serious: Yes (Hospitalization, Other)
  Sender: FDA-Public Use
  Company Number: US-DRREDDYS-USA/USA/18/0100806

PATIENT
  Age: 71 Year
  Sex: Male

DRUGS (1)
  1. DECITABINE. [Suspect]
     Active Substance: DECITABINE
     Indication: ACUTE MYELOID LEUKAEMIA
     Route: 065

REACTIONS (5)
  - Acute myocardial infarction [Unknown]
  - Heart rate increased [Unknown]
  - Supraventricular tachycardia [Unknown]
  - Hypotension [Unknown]
  - Diverticulitis [Unknown]

NARRATIVE: CASE EVENT DATE: 20180515
